FAERS Safety Report 18249851 (Version 2)
Quarter: 2020Q4

REPORT INFORMATION
  Report Type: Report from Study
  Country: DE (occurrence: DE)
  Receive Date: 20200909
  Receipt Date: 20201014
  Transmission Date: 20210113
  Serious: Yes (Other)
  Sender: FDA-Public Use
  Company Number: DE-AMERICAN REGENT INC-2020001820

PATIENT
  Age: 8 Decade
  Sex: Male
  Weight: 91 kg

DRUGS (11)
  1. FERINJECT [Suspect]
     Active Substance: FERRIC CARBOXYMALTOSE
     Dosage: 500 MG (DILUTED 10 ML IN 250 ML)
     Dates: start: 20200407, end: 20200407
  2. PANTOPRAZOLE [Concomitant]
     Active Substance: PANTOPRAZOLE
     Indication: PROPHYLAXIS
     Dosage: 40 MILLIGRAM
     Route: 048
  3. FERINJECT [Suspect]
     Active Substance: FERRIC CARBOXYMALTOSE
     Dosage: 500 MG (DILUTED 10 ML IN 250 ML)
     Dates: start: 20200401, end: 20200401
  4. FERINJECT [Suspect]
     Active Substance: FERRIC CARBOXYMALTOSE
     Dosage: 500 MG (DILUTED 10 ML IN 250 ML)
     Dates: start: 20200320, end: 20200320
  5. 5-FU                               /00098801/ [Concomitant]
     Active Substance: FLUOROURACIL
     Indication: GASTRIC CANCER
     Dosage: 5512 MILLIGRAM
     Route: 042
     Dates: start: 20200227, end: 20200407
  6. CALCIUMFOLINAT [Concomitant]
     Active Substance: LEUCOVORIN CALCIUM
     Indication: GASTRIC CANCER
     Dosage: 424 MILLIGRAM
     Route: 042
     Dates: start: 20200227, end: 20200407
  7. FERINJECT [Suspect]
     Active Substance: FERRIC CARBOXYMALTOSE
     Indication: IRON DEFICIENCY
     Dosage: 500 MG (DILUTED 10 ML IN 250 ML)
     Dates: start: 20200227, end: 20200227
  8. OXALIPLATIN. [Concomitant]
     Active Substance: OXALIPLATIN
     Indication: GASTRIC CANCER
     Dosage: 180.2 MILLIGRAM
     Route: 042
     Dates: start: 20200227, end: 20200407
  9. DOCETAXEL. [Concomitant]
     Active Substance: DOCETAXEL
     Indication: GASTRIC CANCER
     Dosage: 106 MILLIGRAM
     Route: 042
     Dates: start: 20200227, end: 20200407
  10. FERINJECT [Suspect]
     Active Substance: FERRIC CARBOXYMALTOSE
     Dosage: 500 MG (DILUTED 10 ML IN 250 ML)
     Dates: start: 20200311, end: 20200311
  11. TAMSULOSIN [Concomitant]
     Active Substance: TAMSULOSIN
     Indication: BENIGN PROSTATIC HYPERPLASIA
     Dosage: 0.4 MILLIGRAM
     Route: 048

REACTIONS (1)
  - Leukopenia [Recovered/Resolved]

NARRATIVE: CASE EVENT DATE: 20200324
